FAERS Safety Report 17682104 (Version 1)
Quarter: 2020Q2

REPORT INFORMATION
  Report Type: Spontaneous
  Country: US (occurrence: US)
  Receive Date: 20200418
  Receipt Date: 20200418
  Transmission Date: 20200714
  Serious: Yes (Other)
  Sender: FDA-Public Use
  Company Number: US-ACCORD-179220

PATIENT
  Age: 57 Year
  Sex: Male

DRUGS (1)
  1. CLONAZEPAM ACCORD [Suspect]
     Active Substance: CLONAZEPAM
     Indication: PRODUCT USED FOR UNKNOWN INDICATION
     Dosage: 1MG X4 A DAY FOR TWO YEARS

REACTIONS (5)
  - Asthenia [Unknown]
  - Product substitution issue [Unknown]
  - Rectal haemorrhage [Unknown]
  - Gastrointestinal disorder [Unknown]
  - Mouth haemorrhage [Unknown]
